FAERS Safety Report 6036361-X (Version None)
Quarter: 2009Q1

REPORT INFORMATION
  Report Type: 
  Country: None (occurrence: None)
  Receive Date: 20090113
  Receipt Date: 20081229
  Transmission Date: 20090719
  Serious: Yes (Other)
  Sender: FDA-Public Use
  Company Number: US-GENENTECH-275343

PATIENT
  Age: 24 Year
  Sex: Female

DRUGS (5)
  1. RITUXAN [Suspect]
     Indication: SYSTEMIC LUPUS ERYTHEMATOSUS
     Dosage: 375 MG/M2, 1/WEEK
     Route: 042
  2. PREDNISONE TAB [Concomitant]
     Indication: PREMEDICATION
  3. DIPHENHYDRAMINE HCL [Suspect]
     Indication: PREMEDICATION
     Route: 048
  4. ACETAMINOPHEN [Suspect]
     Indication: PREMEDICATION
     Route: 048
  5. METHYLPREDNISOLONE 16MG TAB [Concomitant]
     Indication: DRUG USE FOR UNKNOWN INDICATION

REACTIONS (1)
  - SERUM SICKNESS [None]
